FAERS Safety Report 23136672 (Version 2)
Quarter: 2023Q4

REPORT INFORMATION
  Report Type: Report from Study
  Country: DE (occurrence: DE)
  Receive Date: 20231102
  Receipt Date: 20231228
  Transmission Date: 20240109
  Serious: Yes (Hospitalization)
  Sender: FDA-Public Use
  Company Number: DE-ABBVIE-5468952

PATIENT
  Age: 60 Year
  Sex: Female
  Weight: 72 kg

DRUGS (3)
  1. SKYRIZI [Suspect]
     Active Substance: RISANKIZUMAB-RZAA
     Indication: Psoriasis
     Route: 058
     Dates: start: 20220201
  2. LEVOTHYROXINE SODIUM [Concomitant]
     Active Substance: LEVOTHYROXINE SODIUM
     Indication: Product used for unknown indication
  3. FOSTER [Concomitant]
     Active Substance: BECLOMETHASONE\FORMOTEROL
     Indication: Product used for unknown indication
     Dosage: 1 STROKE? SPRAY

REACTIONS (5)
  - Uterine prolapse [Recovered/Resolved]
  - Maternal exposure during pregnancy [Unknown]
  - Musculoskeletal disorder [Unknown]
  - Device intolerance [Unknown]
  - Medical device discomfort [Unknown]

NARRATIVE: CASE EVENT DATE: 20230309
